FAERS Safety Report 6391321-4 (Version None)
Quarter: 2009Q4

REPORT INFORMATION
  Report Type: 
  Country: None (occurrence: None)
  Receive Date: 20091007
  Receipt Date: 20090928
  Transmission Date: 20100525
  Serious: Yes (Other)
  Sender: FDA-Public Use
  Company Number: PHHY2009CA38729

PATIENT
  Sex: Male

DRUGS (5)
  1. CLOZARIL [Suspect]
     Indication: PSYCHOTIC DISORDER
     Dosage: 50 MG
     Route: 048
     Dates: start: 20090824, end: 20090903
  2. LITHIUM [Concomitant]
  3. LORAZEPAM [Concomitant]
  4. SINEMET [Concomitant]
  5. MIRAPEX [Concomitant]

REACTIONS (2)
  - FALL [None]
  - SYNCOPE [None]
